FAERS Safety Report 10192421 (Version 1)
Quarter: 2014Q2

REPORT INFORMATION
  Report Type: Spontaneous
  Country: US (occurrence: US)
  Receive Date: 20140523
  Receipt Date: 20140523
  Transmission Date: 20141212
  Serious: No
  Sender: FDA-Public Use
  Company Number: US-PFIZER INC-2014137962

PATIENT
  Sex: 0

DRUGS (1)
  1. LYRICA [Suspect]
     Dosage: UNK

REACTIONS (4)
  - White blood cell count decreased [Unknown]
  - Platelet count decreased [Unknown]
  - Macrocytosis [Unknown]
  - Blood disorder [Unknown]
